FAERS Safety Report 5596343-9 (Version None)
Quarter: 2008Q1

REPORT INFORMATION
  Report Type: 
  Country: None (occurrence: None)
  Receive Date: 20080118
  Receipt Date: 20080111
  Transmission Date: 20080703
  Serious: Yes (Hospitalization)
  Sender: FDA-Public Use
  Company Number: NZ-MERCK-0801NZL00001

PATIENT
  Age: 60 Year
  Sex: Female

DRUGS (6)
  1. ZOCOR [Suspect]
     Indication: BLOOD CHOLESTEROL
     Route: 048
     Dates: start: 20020720, end: 20071103
  2. CANDESARTAN CILEXETIL [Concomitant]
     Indication: HYPERTENSION
     Route: 048
  3. ASPIRIN [Concomitant]
     Indication: CEREBROVASCULAR ACCIDENT PROPHYLAXIS
     Route: 048
  4. INSULIN [Concomitant]
     Indication: DIABETES MELLITUS
     Route: 051
  5. DOXYCYCLINE [Concomitant]
     Indication: PNEUMONIA
     Route: 048
     Dates: start: 20071001
  6. CODEINE [Concomitant]
     Indication: MYALGIA
     Route: 048
     Dates: start: 20071001

REACTIONS (9)
  - ASTHENIA [None]
  - DYSPHONIA [None]
  - DYSPNOEA [None]
  - EAR DISCOMFORT [None]
  - ENTEROCOCCAL INFECTION [None]
  - PHARYNGOLARYNGEAL PAIN [None]
  - PNEUMONIA [None]
  - POLYMYOSITIS [None]
  - ULTRASOUND KIDNEY ABNORMAL [None]
